FAERS Safety Report 4731507-5 (Version None)
Quarter: 2005Q3

REPORT INFORMATION
  Report Type: 
  Country: None (occurrence: None)
  Receive Date: 20050721
  Receipt Date: 20050524
  Transmission Date: 20060218
  Serious: Yes (Other)
  Sender: FDA-Public Use
  Company Number: 2005077213

PATIENT
  Sex: Female

DRUGS (3)
  1. RELPAX [Suspect]
     Indication: MIGRAINE
     Dosage: 60 MG (20 MG,3 IN 1 AS NECESSARY), ORAL
     Route: 048
     Dates: start: 20050516
  2. ALLEGRA [Concomitant]
  3. SYNTHROID [Concomitant]

REACTIONS (2)
  - HEADACHE [None]
  - NECK PAIN [None]
